FAERS Safety Report 6316042-5 (Version None)
Quarter: 2009Q3

REPORT INFORMATION
  Report Type: 
  Country: None (occurrence: None)
  Receive Date: 20090820
  Receipt Date: 20090806
  Transmission Date: 20100115
  Serious: Yes (Hospitalization)
  Sender: FDA-Public Use
  Company Number: JP-BAYER-200912314BYL

PATIENT
  Age: 58 Year
  Sex: Male
  Weight: 65 kg

DRUGS (7)
  1. NEXAVAR [Suspect]
     Indication: HEPATIC CANCER STAGE IV
     Dosage: TOTAL DAILY DOSE: 800 MG  UNIT DOSE: 200 MG
     Route: 048
     Dates: start: 20090623, end: 20090712
  2. NEXAVAR [Suspect]
     Dosage: TOTAL DAILY DOSE: 400 MG  UNIT DOSE: 200 MG
     Route: 048
     Dates: start: 20090713
  3. PURSENNID [Concomitant]
     Indication: CONSTIPATION
     Route: 048
     Dates: start: 20090712, end: 20090712
  4. MAGNESIUM OXIDE [Concomitant]
     Indication: CONSTIPATION
     Dosage: TOTAL DAILY DOSE: 1.5 G
     Route: 048
     Dates: start: 20090712
  5. ZEFIX [Concomitant]
     Dosage: BEFORE NEXAVAR ADMINISTRATION
     Route: 048
  6. ALDACTONE [Concomitant]
     Dosage: BEFORE NEXAVAR ADMINISTRATION
     Route: 048
  7. FAMOTIDINE [Concomitant]
     Dosage: BEFORE NEXAVAR ADMINISTRATION
     Route: 048

REACTIONS (4)
  - CONSTIPATION [None]
  - HEPATIC ENCEPHALOPATHY [None]
  - LIPASE INCREASED [None]
  - PALMAR-PLANTAR ERYTHRODYSAESTHESIA SYNDROME [None]
